FAERS Safety Report 18794431 (Version 1)
Quarter: 2021Q1

REPORT INFORMATION
  Report Type: Spontaneous
  Country: US (occurrence: US)
  Receive Date: 20210127
  Receipt Date: 20210127
  Transmission Date: 20210419
  Serious: Yes (Other)
  Sender: FDA-Public Use
  Company Number: US-MYLANLABS-2021M1002863

PATIENT
  Sex: Female

DRUGS (1)
  1. NORETHISTERONE MYLAN [Suspect]
     Active Substance: NORETHINDRONE
     Indication: UTERINE HAEMORRHAGE
     Dosage: UNK

REACTIONS (1)
  - Drug ineffective for unapproved indication [Unknown]
